FAERS Safety Report 25677761 (Version 2)
Quarter: 2025Q3

REPORT INFORMATION
  Report Type: Spontaneous
  Country: US (occurrence: US)
  Receive Date: 20250813
  Receipt Date: 20250915
  Transmission Date: 20251021
  Serious: No
  Sender: PFIZER
  Company Number: US-PFIZER INC-PV202500097900

PATIENT
  Age: 37 Year
  Sex: Female

DRUGS (3)
  1. XELJANZ XR [Suspect]
     Active Substance: TOFACITINIB CITRATE
     Indication: Psoriatic arthropathy
     Dosage: 11 MG, 1X/DAY
     Route: 048
     Dates: start: 2023
  2. OTEZLA [Concomitant]
     Active Substance: APREMILAST
  3. BIMEKIZUMAB [Concomitant]
     Active Substance: BIMEKIZUMAB

REACTIONS (2)
  - Hypertension [Unknown]
  - Weight decreased [Unknown]
